FAERS Safety Report 7939787-X (Version None)
Quarter: 2011Q4

REPORT INFORMATION
  Report Type: 
  Country: None (occurrence: None)
  Receive Date: 20111125
  Receipt Date: 20111122
  Transmission Date: 20120403
  Serious: Yes (Death, Hospitalization)
  Sender: FDA-Public Use
  Company Number: PHHY2011FR81512

PATIENT
  Age: 77 Year
  Sex: Female

DRUGS (3)
  1. VOLTAREN [Suspect]
     Indication: PAIN IN EXTREMITY
     Dosage: 100 MG, 1 TABLET DAILY
     Route: 048
  2. BETA ADRENERGIC BLOCKING DRUGS [Concomitant]
     Indication: HYPERTENSION
     Dosage: UNK UKN, UNK
  3. OMEPRAZOLE [Concomitant]
     Indication: HYPERTENSION
     Dosage: UNK UKN, UNK

REACTIONS (7)
  - HEPATIC HAEMATOMA [None]
  - GAMMA-GLUTAMYLTRANSFERASE INCREASED [None]
  - NAUSEA [None]
  - PLEURAL EFFUSION [None]
  - NEOPLASM MALIGNANT [None]
  - C-REACTIVE PROTEIN INCREASED [None]
  - FATIGUE [None]
